FAERS Safety Report 6652388-9 (Version None)
Quarter: 2010Q1

REPORT INFORMATION
  Report Type: 
  Country: None (occurrence: None)
  Receive Date: 20100325
  Receipt Date: 20100317
  Transmission Date: 20100710
  Serious: Yes (Death, Hospitalization)
  Sender: FDA-Public Use
  Company Number: BR-ABBOTT-10P-020-0622812-00

PATIENT
  Sex: Male

DRUGS (4)
  1. HUMIRA [Suspect]
     Indication: ANKYLOSING SPONDYLITIS
     Route: 058
     Dates: start: 20081001
  2. CORTICORTEN [Concomitant]
     Indication: PAIN
     Dosage: FORM STRENGTH: 20 MILLIGRAM
     Route: 048
  3. UNKNOWN DRUG [Concomitant]
     Indication: PAIN
     Route: 048
  4. MELOXICAM [Concomitant]
     Indication: DRUG USE FOR UNKNOWN INDICATION

REACTIONS (4)
  - BRAIN HYPOXIA [None]
  - CARDIAC ARREST [None]
  - HAEMORRHAGE [None]
  - OSTEOARTHRITIS [None]
